FAERS Safety Report 7665822-2 (Version None)
Quarter: 2011Q3

REPORT INFORMATION
  Report Type: 
  Country: None (occurrence: None)
  Receive Date: 20110806
  Receipt Date: 20110324
  Transmission Date: 20111222
  Serious: No
  Sender: FDA-Public Use
  Company Number: US-ABBOTT-11P-163-0713931-00

PATIENT
  Weight: 86.26 kg

DRUGS (2)
  1. NIASPAN [Suspect]
     Indication: FAMILIAL RISK FACTOR
  2. NIASPAN [Suspect]
     Indication: LIPOPROTEIN (A) ABNORMAL
     Dosage: AT BEDTIME
     Route: 048
     Dates: start: 20110321, end: 20110322

REACTIONS (5)
  - ADVERSE DRUG REACTION [None]
  - BURNING SENSATION [None]
  - HEART RATE INCREASED [None]
  - MIDDLE INSOMNIA [None]
  - FLUSHING [None]
